FAERS Safety Report 9706063 (Version 4)
Quarter: 2014Q1

REPORT INFORMATION
  Report Type: Spontaneous
  Country: FR (occurrence: FR)
  Receive Date: 20131123
  Receipt Date: 20140212
  Transmission Date: 20141002
  Serious: Yes (Hospitalization)
  Sender: FDA-Public Use
  Company Number: PHHY2013FR131638

PATIENT
  Age: 72 Year
  Sex: Male
  Weight: 89 kg

DRUGS (20)
  1. GLIVEC [Suspect]
     Indication: ACUTE LYMPHOCYTIC LEUKAEMIA
     Dosage: 600 MG, QD
     Route: 048
     Dates: start: 20130906, end: 20131028
  2. LASILIX [Concomitant]
     Indication: OEDEMA
     Dosage: UNK UKN, UNK
  3. ATACAND [Concomitant]
     Indication: HYPERTENSION
     Dosage: 40 MG, IN MORNING AND EVENING
  4. ATACAND [Concomitant]
     Dosage: 80 MG, QD
     Route: 048
     Dates: start: 20131028
  5. XATRAL [Concomitant]
     Dosage: UNK UKN, UNK
  6. XATRAL [Concomitant]
     Dosage: 2 MG, QD (EVENING)
  7. FLECAINE [Concomitant]
     Indication: ATRIAL FIBRILLATION
     Dosage: UNK UKN, UNK
     Route: 048
     Dates: start: 20131028
  8. KARDEGIC [Concomitant]
     Dosage: UNK UKN, UNK
  9. NEUPOGEN [Concomitant]
     Dosage: UNK UKN, UNK
     Dates: start: 20130916, end: 20130920
  10. NEUPOGEN [Concomitant]
     Dosage: UNK UKN, UNK
     Dates: start: 20130927, end: 20131001
  11. METHOTREXATE [Concomitant]
     Dosage: 15 MG, UNK
     Route: 037
     Dates: start: 20130913
  12. METHOTREXATE [Concomitant]
     Dosage: 15 MG, UNK
     Route: 037
     Dates: start: 20130914
  13. DEXAMETHASONE [Concomitant]
     Dosage: 20 MG, UNK
     Route: 048
     Dates: start: 20130913
  14. DEXAMETHASONE [Concomitant]
     Dosage: 20 MG, UNK
     Route: 048
     Dates: start: 20130914
  15. VINCRISTINE [Concomitant]
     Dosage: 1 MG, UNK
     Dates: start: 20130913
  16. VINCRISTINE [Concomitant]
     Dosage: 1 MG, UNK
     Dates: start: 20130914
  17. METHYLPREDNISOLONE [Concomitant]
     Dosage: 40 MG, UNK
     Route: 037
     Dates: start: 20130913
  18. METHYLPREDNISOLONE [Concomitant]
     Dosage: 40 MG, UNK
     Route: 037
     Dates: start: 20130914
  19. CYTARABINE [Concomitant]
     Dosage: 40 MG, UNK
     Route: 037
     Dates: start: 20130913
  20. CYTARABINE [Concomitant]
     Dosage: 40 MG, UNK
     Route: 037
     Dates: start: 20130914

REACTIONS (10)
  - Cardiac failure [Recovering/Resolving]
  - Crepitations [Unknown]
  - Myocarditis [Recovered/Resolved with Sequelae]
  - Atrial fibrillation [Not Recovered/Not Resolved]
  - Neutropenia [Recovered/Resolved]
  - Dyspnoea [Unknown]
  - Tachycardia [Unknown]
  - Weight increased [Unknown]
  - Oedema peripheral [Unknown]
  - Exercise tolerance decreased [Unknown]
